FAERS Safety Report 7471274-8 (Version None)
Quarter: 2011Q2

REPORT INFORMATION
  Report Type: 
  Country: None (occurrence: None)
  Receive Date: 20110510
  Receipt Date: 20110506
  Transmission Date: 20111010
  Serious: Yes (Hospitalization)
  Sender: FDA-Public Use
  Company Number: US-GILEAD-2011-0037953

PATIENT
  Sex: Female

DRUGS (8)
  1. ONGLYZA [Suspect]
     Indication: TYPE 2 DIABETES MELLITUS
     Dates: start: 20101019
  2. LANTUS [Suspect]
     Indication: TYPE 2 DIABETES MELLITUS
     Dates: start: 20090601
  3. VOLTAREN [Suspect]
     Dates: end: 20110211
  4. RANEXA [Suspect]
     Indication: ANGINA PECTORIS
  5. NITRATES [Concomitant]
  6. ACTOS [Suspect]
     Indication: TYPE 2 DIABETES MELLITUS
     Dates: start: 20101227, end: 20110211
  7. ASPIRIN [Concomitant]
  8. NOVOLOG [Suspect]
     Indication: TYPE 2 DIABETES MELLITUS
     Dates: start: 20090518

REACTIONS (3)
  - RENAL FAILURE ACUTE [None]
  - NON-CARDIAC CHEST PAIN [None]
  - ABDOMINAL PAIN [None]
